FAERS Safety Report 6502853-X (Version None)
Quarter: 2009Q4

REPORT INFORMATION
  Report Type: 
  Country: None (occurrence: None)
  Receive Date: 20091127
  Receipt Date: 20090526
  Transmission Date: 20100525
  Serious: Yes (Other)
  Sender: FDA-Public Use
  Company Number: WAES 0905USA03595

PATIENT
  Age: 65 Year
  Sex: Female

DRUGS (2)
  1. FOSAMAX [Suspect]
     Indication: OSTEOPOROSIS
     Dosage: PO; WKY/PO
     Route: 048
     Dates: start: 19980101, end: 20051101
  2. FOSAMAX [Suspect]
     Indication: OSTEOPOROSIS
     Dosage: PO; WKY/PO
     Route: 048
     Dates: end: 20051212

REACTIONS (6)
  - CARDIAC DISORDER [None]
  - GALLBLADDER DISORDER [None]
  - GASTROOESOPHAGEAL REFLUX DISEASE [None]
  - HEART RATE INCREASED [None]
  - HYPERTENSION [None]
  - OSTEONECROSIS [None]
